FAERS Safety Report 14381545 (Version 1)
Quarter: 2018Q1

REPORT INFORMATION
  Report Type: Other
  Country: US (occurrence: US)
  Receive Date: 20180112
  Receipt Date: 20180112
  Transmission Date: 20180509
  Serious: Yes (Death)
  Sender: FDA-Public Use
  Company Number: US-GENUS_LIFESCIENCES-USA-POI0580201800021

PATIENT
  Age: 33 Year
  Sex: Female

DRUGS (9)
  1. AMPHETAMINE WITH DEXTROAMPHETAMINE [Suspect]
     Active Substance: AMPHETAMINE\DEXTROAMPHETAMINE
     Dates: end: 2016
  2. NAPROXEN. [Suspect]
     Active Substance: NAPROXEN
     Dates: end: 2016
  3. NORTRIPTYLINE [Suspect]
     Active Substance: NORTRIPTYLINE
     Dates: end: 2016
  4. SULFAMETHOXAZOLE WITH TRIMETHOPRIM [Suspect]
     Active Substance: SULFAMETHOXAZOLE\TRIMETHOPRIM
     Dates: end: 2016
  5. CYCLOBENZAPRINE. [Suspect]
     Active Substance: CYCLOBENZAPRINE
     Dates: end: 2016
  6. DULOXETINE. [Suspect]
     Active Substance: DULOXETINE
     Dates: end: 2016
  7. OXYCODONE HCL CAPSULES [Suspect]
     Active Substance: OXYCODONE HYDROCHLORIDE
     Dates: end: 2016
  8. GABAPENTIN. [Suspect]
     Active Substance: GABAPENTIN
     Dates: end: 2016
  9. MONTELUKAST [Suspect]
     Active Substance: MONTELUKAST SODIUM
     Dates: end: 2016

REACTIONS (1)
  - Completed suicide [Fatal]

NARRATIVE: CASE EVENT DATE: 2016
